FAERS Safety Report 6733403-0 (Version None)
Quarter: 2010Q2

REPORT INFORMATION
  Report Type: 
  Country: None (occurrence: None)
  Receive Date: 20100520
  Receipt Date: 20100511
  Transmission Date: 20101027
  Serious: Yes (Other)
  Sender: FDA-Public Use
  Company Number: BR-BAYER-201013418LA

PATIENT
  Age: 51 Year
  Sex: Female
  Weight: 78 kg

DRUGS (7)
  1. MIRENA [Suspect]
     Indication: CONTRACEPTION
     Route: 015
     Dates: start: 20090508
  2. PROPRANOLOL [Concomitant]
     Indication: MITRAL VALVE PROLAPSE
     Dosage: UNIT DOSE: 40 MG
     Route: 048
  3. SYNTHROID [Concomitant]
     Indication: THYROIDECTOMY
     Dosage: UNIT DOSE: 137 MG
     Route: 048
     Dates: start: 20100301
  4. RIVOTRIL [Concomitant]
     Indication: DEPRESSION
     Dosage: TOTAL DAILY DOSE: 1 TABLET
     Route: 048
     Dates: end: 20100101
  5. SIBUTRAMINE [Concomitant]
     Indication: DEPRESSION
     Dosage: UNIT DOSE: 15 MG
     Route: 048
     Dates: end: 20100401
  6. BROMAZEPAM [Concomitant]
     Indication: DEPRESSION
     Dosage: TOTAL DAILY DOSE: 1 TABLET
     Route: 048
  7. FLUOXETINE [Concomitant]
     Indication: DRUG USE FOR UNKNOWN INDICATION

REACTIONS (4)
  - OEDEMA PERIPHERAL [None]
  - PAIN IN EXTREMITY [None]
  - PLANTAR FASCIITIS [None]
  - VENOUS THROMBOSIS LIMB [None]
